FAERS Safety Report 5264914-5 (Version None)
Quarter: 2007Q1

REPORT INFORMATION
  Report Type: 
  Country: None (occurrence: None)
  Receive Date: 20070314
  Receipt Date: 20070303
  Transmission Date: 20070707
  Serious: Yes (Hospitalization)
  Sender: FDA-Public Use
  Company Number: ES-AMGEN-UK212404

PATIENT
  Sex: Male

DRUGS (6)
  1. NEULASTA [Suspect]
     Indication: CHEMOTHERAPY
     Route: 065
  2. RITUXIMAB [Concomitant]
  3. CYCLOPHOSPHAMIDE [Concomitant]
  4. DOXORUBICIN HYDROCHLORIDE [Concomitant]
  5. VINCRISTINE [Concomitant]
  6. PREDNISOLONE [Concomitant]

REACTIONS (3)
  - ALPHA HAEMOLYTIC STREPTOCOCCAL INFECTION [None]
  - ASCITES [None]
  - STREPTOCOCCAL IDENTIFICATION TEST POSITIVE [None]
